FAERS Safety Report 5018400-8 (Version None)
Quarter: 2006Q2

REPORT INFORMATION
  Report Type: 
  Country: None (occurrence: None)
  Receive Date: 20060605
  Receipt Date: 20060524
  Transmission Date: 20061013
  Serious: Yes (Disabling)
  Sender: FDA-Public Use
  Company Number: PHBS2006ES07683

PATIENT
  Age: 40 Year
  Sex: Male

DRUGS (4)
  1. SULFASALAZINE [Concomitant]
     Indication: ANKYLOSING SPONDYLITIS
     Dates: start: 20050101
  2. GLEEVEC [Suspect]
     Dosage: 400 MG/D
     Route: 048
     Dates: start: 20030101
  3. GLEEVEC [Suspect]
     Dosage: 300 MG/D
     Route: 048
  4. GLEEVEC [Suspect]
     Dosage: 400 MG/D
     Route: 048

REACTIONS (5)
  - BLINDNESS [None]
  - DIARRHOEA [None]
  - MYDRIASIS [None]
  - OPTIC NEURITIS RETROBULBAR [None]
  - VISION BLURRED [None]
